FAERS Safety Report 8977884 (Version 2)
Quarter: 2013Q1

REPORT INFORMATION
  Report Type: Spontaneous
  Country: GB (occurrence: GB)
  Receive Date: 20121219
  Receipt Date: 20130204
  Transmission Date: 20140127
  Serious: Yes (Life-Threatening, Hospitalization, Other)
  Sender: FDA-Public Use
  Company Number: GB-ASTRAZENECA-2012SE92495

PATIENT
  Age: 38 Year
  Sex: Male

DRUGS (5)
  1. SEROQUEL XL [Suspect]
     Indication: BIPOLAR II DISORDER
     Route: 048
     Dates: start: 20111201
  2. DIAZEPAM [Concomitant]
  3. SODIUM VALPROATE [Concomitant]
  4. LUSTRAL [Concomitant]
  5. SHORT ACTING ANTI-PSYCHOTIC [Concomitant]

REACTIONS (9)
  - Gastrointestinal infection [Recovered/Resolved]
  - Psychotic disorder [Recovered/Resolved]
  - Mental disorder [Recovered/Resolved]
  - Withdrawal syndrome [Unknown]
  - Panic attack [Unknown]
  - Intentional drug misuse [Unknown]
  - Somnolence [Unknown]
  - Tachycardia [Unknown]
  - Drug dose omission [Unknown]
